FAERS Safety Report 5512114-3 (Version None)
Quarter: 2007Q4

REPORT INFORMATION
  Report Type: 
  Country: None (occurrence: None)
  Receive Date: 20071109
  Receipt Date: 20071030
  Transmission Date: 20080405
  Serious: Yes (Other)
  Sender: FDA-Public Use
  Company Number: US-PFIZER INC-2007093646

PATIENT
  Sex: Female
  Weight: 59.9 kg

DRUGS (2)
  1. LYRICA [Suspect]
  2. TYLENOL (CAPLET) [Concomitant]

REACTIONS (4)
  - ACTIVITIES OF DAILY LIVING IMPAIRED [None]
  - FEELING ABNORMAL [None]
  - FEELING DRUNK [None]
  - SOMNOLENCE [None]
